FAERS Safety Report 22123283 (Version 1)
Quarter: 2023Q1

REPORT INFORMATION
  Report Type: Spontaneous
  Country: US (occurrence: US)
  Receive Date: 20230322
  Receipt Date: 20230322
  Transmission Date: 20230418
  Serious: No
  Sender: FDA-Public Use
  Company Number: US-ELI_LILLY_AND_COMPANY-US202303009535

PATIENT
  Sex: Female

DRUGS (1)
  1. MOUNJARO [Suspect]
     Active Substance: TIRZEPATIDE
     Indication: Product used for unknown indication
     Dosage: 10 MG, UNKNOWN
     Route: 065

REACTIONS (5)
  - Headache [Recovered/Resolved]
  - Palpitations [Recovered/Resolved]
  - Musculoskeletal chest pain [Recovered/Resolved]
  - Pruritus [Recovered/Resolved]
  - Insomnia [Recovered/Resolved]
